FAERS Safety Report 15552925 (Version 2)
Quarter: 2018Q4

REPORT INFORMATION
  Report Type: Spontaneous
  Country: US (occurrence: US)
  Receive Date: 20181025
  Receipt Date: 20181122
  Transmission Date: 20190205
  Serious: No
  Sender: FDA-Public Use
  Company Number: US-JNJFOC-20181004075

PATIENT
  Sex: Male

DRUGS (3)
  1. ZYTIGA [Suspect]
     Active Substance: ABIRATERONE ACETATE
     Indication: PROSTATE CANCER
     Route: 048
     Dates: start: 2018
  2. ALFUZOSIN [Concomitant]
     Active Substance: ALFUZOSIN
     Route: 048
  3. PREDNISONE. [Concomitant]
     Active Substance: PREDNISONE
     Indication: PRODUCT USED FOR UNKNOWN INDICATION
     Route: 048

REACTIONS (7)
  - Fatigue [Unknown]
  - Testicular atrophy [Unknown]
  - Musculoskeletal pain [Unknown]
  - Seborrhoea [Unknown]
  - Prostatic specific antigen decreased [Unknown]
  - Blood testosterone abnormal [Unknown]
  - Sperm concentration decreased [Unknown]
